FAERS Safety Report 6185049-3 (Version None)
Quarter: 2009Q2

REPORT INFORMATION
  Report Type: 
  Country: None (occurrence: None)
  Receive Date: 20090511
  Receipt Date: 20090429
  Transmission Date: 20091009
  Serious: Yes (Other)
  Sender: FDA-Public Use
  Company Number: US-JNJFOC-20090400636

PATIENT
  Sex: Female
  Weight: 95.26 kg

DRUGS (12)
  1. REMICADE [Suspect]
     Route: 042
  2. REMICADE [Suspect]
     Route: 042
  3. REMICADE [Suspect]
     Indication: RHEUMATOID ARTHRITIS
     Route: 042
  4. BENADRYL [Suspect]
     Indication: DRUG USE FOR UNKNOWN INDICATION
  5. ACETAMINOPHEN [Suspect]
     Indication: DRUG USE FOR UNKNOWN INDICATION
  6. CORTICOSTEROID [Suspect]
     Indication: DRUG USE FOR UNKNOWN INDICATION
  7. POTASSIUM CHLORIDE [Concomitant]
  8. FOLIC ACID [Concomitant]
  9. PREDNISONE [Concomitant]
     Indication: RHEUMATOID ARTHRITIS
  10. METHOTREXATE SODIUM [Concomitant]
     Indication: RHEUMATOID ARTHRITIS
  11. COUMADIN [Concomitant]
     Indication: THROMBOSIS
  12. DIOVAN [Concomitant]
     Indication: BLOOD PRESSURE

REACTIONS (8)
  - ABDOMINAL PAIN UPPER [None]
  - BREAST CANCER [None]
  - CHEST DISCOMFORT [None]
  - DYSPNOEA [None]
  - FEELING HOT [None]
  - FLUSHING [None]
  - INFUSION RELATED REACTION [None]
  - MALAISE [None]
